FAERS Safety Report 22130248 (Version 1)
Quarter: 2023Q1

REPORT INFORMATION
  Report Type: Spontaneous
  Country: US (occurrence: US)
  Receive Date: 20230323
  Receipt Date: 20230323
  Transmission Date: 20230418
  Serious: No
  Sender: FDA-Public Use
  Company Number: US-MYOVANT SCIENCES GMBH-2023MYSCI0200547

PATIENT
  Sex: Female

DRUGS (3)
  1. MYFEMBREE [Suspect]
     Active Substance: ESTRADIOL HEMIHYDRATE\NORETHINDRONE ACETATE\RELUGOLIX
     Indication: Endometriosis
     Dosage: 1 TAB, QD
     Route: 048
     Dates: start: 20230216
  2. MYFEMBREE [Suspect]
     Active Substance: ESTRADIOL HEMIHYDRATE\NORETHINDRONE ACETATE\RELUGOLIX
     Indication: Heavy menstrual bleeding
  3. IBUPROFEN [Concomitant]
     Active Substance: IBUPROFEN
     Indication: Pain
     Dosage: UNK
     Route: 065

REACTIONS (11)
  - Heart rate increased [Unknown]
  - Disturbance in attention [Unknown]
  - Decreased appetite [Unknown]
  - Feeling abnormal [Unknown]
  - Somnolence [Unknown]
  - Asthenia [Unknown]
  - Abnormal menstrual clots [Unknown]
  - Oligomenorrhoea [Unknown]
  - Nausea [Unknown]
  - Headache [Unknown]
  - Heavy menstrual bleeding [Unknown]
